FAERS Safety Report 17307995 (Version 1)
Quarter: 2020Q1

REPORT INFORMATION
  Report Type: Spontaneous
  Country: FR (occurrence: FR)
  Receive Date: 20200123
  Receipt Date: 20200123
  Transmission Date: 20200409
  Serious: Yes (Hospitalization)
  Sender: FDA-Public Use
  Company Number: FR-ASTRAZENECA-2020SE07712

PATIENT
  Age: 61 Year
  Sex: Female
  Weight: 61 kg

DRUGS (7)
  1. UVEDOSE [Concomitant]
     Active Substance: CHOLECALCIFEROL
     Dosage: UNKNOWN
     Route: 065
  2. VALDOXAN [Suspect]
     Active Substance: AGOMELATINE
     Indication: DEPRESSION
     Route: 048
  3. TEMESTA [LORAZEPAM] [Suspect]
     Active Substance: LORAZEPAM
     Indication: DEPRESSION
     Route: 048
  4. XEROQUEL LP [Suspect]
     Active Substance: QUETIAPINE FUMARATE
     Indication: DEPRESSION
     Route: 048
     Dates: end: 20190107
  5. LIPANTHYL [Suspect]
     Active Substance: FENOFIBRATE
     Indication: PROPHYLAXIS
     Dosage: 320.0MG UNKNOWN
     Route: 048
  6. NOCTAMIDE [Suspect]
     Active Substance: LORMETAZEPAM
     Indication: SOMNOLENCE
     Route: 048
  7. FOSAVANCE [Concomitant]
     Active Substance: ALENDRONATE SODIUM\CHOLECALCIFEROL
     Dosage: UNKNOWN
     Route: 065

REACTIONS (3)
  - Rhabdomyolysis [Recovered/Resolved]
  - Pneumonia aspiration [Recovered/Resolved]
  - Fall [Recovered/Resolved]

NARRATIVE: CASE EVENT DATE: 20190102
